FAERS Safety Report 9212927 (Version 1)
Quarter: 2013Q1

REPORT INFORMATION
  Report Type: Spontaneous
  Country: US (occurrence: None)
  Receive Date: 20120824
  Receipt Date: 20120824
  Transmission Date: 20140127
  Serious: Yes (Other)
  Sender: FDA-Public Use
  Company Number: A-US2012-66757

PATIENT
  Age: 72 Year
  Sex: Female

DRUGS (2)
  1. VELETRI [Suspect]
     Dosage: 10 NG/KG., PER MIN , INTRAVENOUS
     Route: 042
     Dates: start: 20111031
  2. SILENAFIL (SILDENAFIL) [Concomitant]

REACTIONS (2)
  - Catheter site discharge [None]
  - Infusion site discolouration [None]
